FAERS Safety Report 12355090 (Version 2)
Quarter: 2016Q2

REPORT INFORMATION
  Report Type: Spontaneous
  Country: FR (occurrence: FR)
  Receive Date: 20160511
  Receipt Date: 20160519
  Transmission Date: 20160815
  Serious: Yes (Death)
  Sender: FDA-Public Use
  Company Number: FR-PFIZER INC-2016248696

PATIENT
  Age: 72 Year
  Sex: Female

DRUGS (5)
  1. SPASFON [Concomitant]
     Active Substance: PHLOROGLUCINOL
     Dosage: 6 DF, DAILY
     Route: 060
     Dates: start: 20131105
  2. CRIZOTINIB [Suspect]
     Active Substance: CRIZOTINIB
     Indication: NON-SMALL CELL LUNG CANCER STAGE IV
     Dosage: 250 MG, 2X/DAY
     Route: 048
     Dates: start: 20130906, end: 20131107
  3. OROKEN [Concomitant]
     Active Substance: CEFIXIME
     Dosage: 1 DF, 2X/DAY
     Route: 048
     Dates: start: 20131105
  4. VOGALENE [Concomitant]
     Active Substance: METOPIMAZINE
     Dosage: 7.5 MG, 3X/DAY
     Route: 060
     Dates: start: 20131105
  5. MOPRAL [Concomitant]
     Active Substance: OMEPRAZOLE SODIUM
     Dosage: 20 MG, 1X/DAY
     Route: 048
     Dates: start: 2013

REACTIONS (6)
  - Hyperkalaemia [Fatal]
  - Acute kidney injury [Fatal]
  - Generalised oedema [Fatal]
  - Hypotension [Fatal]
  - Hypoalbuminaemia [Fatal]
  - Anuria [Fatal]

NARRATIVE: CASE EVENT DATE: 20131106
